FAERS Safety Report 8590620-5 (Version None)
Quarter: 2012Q3

REPORT INFORMATION
  Report Type: 
  Country: None (occurrence: None)
  Receive Date: 20120813
  Receipt Date: 20120803
  Transmission Date: 20120928
  Serious: Yes (Hospitalization, Other)
  Sender: FDA-Public Use
  Company Number: IN-009507513-1208IND003389

PATIENT

DRUGS (7)
  1. CLOPIDOGREL [Concomitant]
     Dosage: 75 MG, QD
     Route: 048
     Dates: start: 20120327
  2. PANTOP D [Concomitant]
     Dosage: UNK UNK, BID
     Route: 048
     Dates: start: 20120515
  3. MECOBALAMIN [Concomitant]
     Dosage: ONCE
     Route: 048
     Dates: start: 20120515
  4. EZETIMIBE/SIMVASTATIN [Suspect]
     Indication: ACUTE CORONARY SYNDROME
     Dosage: 10-40 MG, QD
     Route: 048
     Dates: start: 20100317
  5. GLYCOMET [Concomitant]
     Dosage: 500 MG, BID
     Route: 048
     Dates: start: 20100313
  6. MET XL TABLETS [Concomitant]
     Dosage: 50 MG, QD
     Route: 048
     Dates: start: 20110711
  7. NATURES BENEFIT DIABETIC MULTIVITAMIN [Concomitant]
     Dosage: UNK, ONCE
     Route: 048
     Dates: start: 20120515

REACTIONS (1)
  - BREAST CANCER [None]
